FAERS Safety Report 24348255 (Version 2)
Quarter: 2024Q4

REPORT INFORMATION
  Report Type: Report from Study
  Country: US (occurrence: US)
  Receive Date: 20240923
  Receipt Date: 20241119
  Transmission Date: 20250115
  Serious: Yes (Other)
  Sender: ABBVIE
  Company Number: US-ABBVIE-5903042

PATIENT
  Age: 55 Year
  Sex: Female
  Weight: 46.72 kg

DRUGS (7)
  1. RINVOQ [Suspect]
     Active Substance: UPADACITINIB
     Indication: Crohn^s disease
     Dosage: FORM STRENGTH: 45MG
     Route: 048
     Dates: start: 20231110, end: 202402
  2. RINVOQ [Suspect]
     Active Substance: UPADACITINIB
     Indication: Crohn^s disease
     Dosage: FORM STRENGTH: 30MG
     Route: 048
     Dates: start: 202402, end: 202407
  3. RINVOQ [Suspect]
     Active Substance: UPADACITINIB
     Indication: Crohn^s disease
     Dosage: FORM STRENGTH: 30MG
     Route: 048
     Dates: start: 20240709
  4. VITAMIN D [Concomitant]
     Active Substance: VITAMIN D NOS
     Indication: Product used for unknown indication
     Route: 048
  5. CALCIUM [Concomitant]
     Active Substance: CALCIUM
     Indication: Product used for unknown indication
     Route: 048
  6. DIETARY SUPPLEMENT [Concomitant]
     Active Substance: DIETARY SUPPLEMENT
     Indication: Product used for unknown indication
     Route: 048
  7. L-GLUTAMINE [Concomitant]
     Active Substance: GLUTAMINE
     Indication: Product used for unknown indication
     Route: 048

REACTIONS (6)
  - Macular hole [Recovering/Resolving]
  - Vision blurred [Unknown]
  - Secretion discharge [Unknown]
  - Blindness [Recovering/Resolving]
  - Eye pain [Recovering/Resolving]
  - Photophobia [Unknown]

NARRATIVE: CASE EVENT DATE: 20240101
